FAERS Safety Report 21842852 (Version 1)
Quarter: 2023Q1

REPORT INFORMATION
  Report Type: Spontaneous
  Country: US (occurrence: None)
  Receive Date: 20230109
  Receipt Date: 20230109
  Transmission Date: 20230417
  Serious: No
  Sender: FDA-Public Use
  Company Number: None

PATIENT
  Age: 61 Year
  Sex: Male
  Weight: 87.09 kg

DRUGS (1)
  1. ENBREL [Suspect]
     Active Substance: ETANERCEPT
     Indication: Upper respiratory tract inflammation
     Dosage: INJECT 50MG  SUBCUTANEOUSLY ONCE WEEKLY  AS DIRECTED?
     Route: 058
     Dates: start: 202211

REACTIONS (2)
  - Nephrolithiasis [None]
  - Gallbladder disorder [None]
